FAERS Safety Report 23993868 (Version 1)
Quarter: 2024Q2

REPORT INFORMATION
  Report Type: Spontaneous
  Country: US (occurrence: US)
  Receive Date: 20240620
  Receipt Date: 20240620
  Transmission Date: 20240716
  Serious: Yes (Hospitalization, Other)
  Sender: FDA-Public Use
  Company Number: US-SUN PHARMACEUTICAL INDUSTRIES LTD-2024R1-451444

PATIENT
  Sex: Female

DRUGS (7)
  1. ONDANSETRON [Suspect]
     Active Substance: ONDANSETRON
     Indication: Tooth abscess
     Route: 065
  2. FENTANYL [Suspect]
     Active Substance: FENTANYL\FENTANYL CITRATE
     Indication: Tooth abscess
     Dosage: 1 MICROGRAM/KILOGRAM
     Route: 065
  3. PROPOFOL [Suspect]
     Active Substance: PROPOFOL
     Indication: Tooth abscess
     Dosage: 2 MILLIGRAM/KILOGRAM
     Route: 065
  4. PROPOFOL [Suspect]
     Active Substance: PROPOFOL
     Dosage: 3 UNK
     Route: 065
  5. SUGAMMADEX [Suspect]
     Active Substance: SUGAMMADEX
     Indication: Tooth abscess
     Dosage: 25 MILLIGRAM
     Route: 065
  6. SUGAMMADEX [Suspect]
     Active Substance: SUGAMMADEX
     Dosage: 50 MILLIGRAM
     Route: 065
  7. ROCURONIUM [Suspect]
     Active Substance: ROCURONIUM BROMIDE
     Indication: Tooth abscess
     Dosage: 1 MILLIGRAM/KILOGRAM
     Route: 065

REACTIONS (3)
  - Exposure during pregnancy [Unknown]
  - Bradycardia foetal [Unknown]
  - Uterine contractions abnormal [Unknown]
